FAERS Safety Report 4399774-8 (Version None)
Quarter: 2004Q3

REPORT INFORMATION
  Report Type: 
  Country: None (occurrence: None)
  Receive Date: 20040714
  Receipt Date: 20040702
  Transmission Date: 20050211
  Serious: Yes (Hospitalization)
  Sender: FDA-Public Use
  Company Number: 04P-167-0262373-00

PATIENT
  Age: 71 Year
  Sex: Male
  Weight: 114 kg

DRUGS (17)
  1. HUMIRA [Suspect]
     Indication: RHEUMATOID ARTHRITIS
     Dosage: 40 MG, SUBCUTANEOUS
     Route: 058
     Dates: start: 20030522
  2. METHOTREXATE [Concomitant]
  3. FOLIC ACID [Concomitant]
  4. CARVEDILOL [Concomitant]
  5. ALLOPURINOL [Concomitant]
  6. LISINOPRIL [Concomitant]
  7. ATORVASTATIN CALCIUM [Concomitant]
  8. ARTHORTEC [Concomitant]
  9. BETAHISTINE [Concomitant]
  10. OMEPRAZOLE [Concomitant]
  11. DOSULEPIN [Concomitant]
  12. METFORMIN HCL [Concomitant]
  13. TAMSULOSIN [Concomitant]
  14. ACETAMINOPHEN W/ CODEINE [Concomitant]
  15. UNSPECIFIED BETA-BLOCKER [Concomitant]
  16. CARTEOLOL HCL [Concomitant]
  17. LATANOPROST [Concomitant]

REACTIONS (3)
  - ATRIOVENTRICULAR BLOCK FIRST DEGREE [None]
  - BRADYCARDIA [None]
  - DYSPNOEA [None]
